FAERS Safety Report 4389942-3 (Version None)
Quarter: 2004Q2

REPORT INFORMATION
  Report Type: 
  Country: None (occurrence: None)
  Receive Date: 20040630
  Receipt Date: 20040616
  Transmission Date: 20050107
  Serious: No
  Sender: FDA-Public Use
  Company Number: 2004AP03222

PATIENT
  Age: 71 Year
  Sex: Female
  Weight: 45 kg

DRUGS (1)
  1. OMEPRAL [Suspect]
     Indication: REFLUX OESOPHAGITIS
     Dosage: 20 MG DAILY PO
     Route: 048
     Dates: start: 20010822

REACTIONS (2)
  - HEADACHE [None]
  - HYPERTENSION [None]
